FAERS Safety Report 6260305-9 (Version None)
Quarter: 2009Q3

REPORT INFORMATION
  Report Type: 
  Country: None (occurrence: None)
  Receive Date: 20090708
  Receipt Date: 20090703
  Transmission Date: 20100115
  Serious: Yes (Other)
  Sender: FDA-Public Use
  Company Number: ES-JNJFOC-20090500830

PATIENT
  Age: 62 Year
  Sex: Female
  Weight: 80 kg

DRUGS (5)
  1. REMICADE [Suspect]
     Indication: PSORIATIC ARTHROPATHY
     Dosage: 15 INFUSION RECEIVED
     Route: 042
  2. SALAZOPYRIN [Concomitant]
  3. VOLTAREN [Concomitant]
     Dosage: 100-200MG/DAY
  4. OMEPRAZOLE [Concomitant]
  5. GALAXDAR [Concomitant]

REACTIONS (8)
  - DYSPNOEA [None]
  - ERYTHEMA [None]
  - FEELING HOT [None]
  - HYPOTENSION [None]
  - INFUSION RELATED REACTION [None]
  - NAUSEA [None]
  - OXYGEN SATURATION ABNORMAL [None]
  - TACHYCARDIA [None]
